FAERS Safety Report 9239835 (Version 1)
Quarter: 2013Q2

REPORT INFORMATION
  Report Type: Spontaneous
  Country: US (occurrence: US)
  Receive Date: 20130418
  Receipt Date: 20130418
  Transmission Date: 20140414
  Serious: No
  Sender: FDA-Public Use
  Company Number: US-B.I. PHARMACEUTICALS,INC./RIDGEFIELD-2013-BI-09553BP

PATIENT
  Sex: Female

DRUGS (6)
  1. CATAPRES TTS [Suspect]
     Indication: SPINAL PAIN
     Dosage: 0.4 MG
     Route: 048
  2. CATAPRES TTS [Suspect]
     Indication: HYPERTENSION
     Dosage: 0.3 MG
     Route: 048
  3. CATAPRES TTS [Suspect]
     Dosage: 0.6 MG
     Route: 048
     Dates: end: 201301
  4. CELEBREX [Concomitant]
  5. CLONIDINE [Concomitant]
     Indication: SPINAL PAIN
     Dates: start: 201301
  6. CLONIDINE [Concomitant]
     Indication: HYPERTENSION

REACTIONS (2)
  - Blood pressure increased [Unknown]
  - Fatigue [Not Recovered/Not Resolved]
